FAERS Safety Report 25094596 (Version 1)
Quarter: 2025Q1

REPORT INFORMATION
  Report Type: Spontaneous
  Country: US (occurrence: US)
  Receive Date: 20250319
  Receipt Date: 20250319
  Transmission Date: 20250408
  Serious: Yes (Other)
  Sender: HIKMA
  Company Number: US-HIKMA PHARMACEUTICALS USA INC.-US-H14001-25-02428

PATIENT
  Age: 52 Year
  Sex: Male

DRUGS (1)
  1. DEXAMETHASONE SODIUM PHOSPHATE [Suspect]
     Active Substance: DEXAMETHASONE SODIUM PHOSPHATE
     Indication: Product used for unknown indication
     Route: 065

REACTIONS (12)
  - Cognitive disorder [Unknown]
  - Headache [Unknown]
  - Seizure [Unknown]
  - Nervous system disorder [Unknown]
  - Arrhythmia [Unknown]
  - Tachycardia [Unknown]
  - Chest pain [Unknown]
  - Cardiomyopathy [Unknown]
  - Inflammation [Unknown]
  - Nerve injury [Unknown]
  - Mobility decreased [Unknown]
  - Condition aggravated [Unknown]

NARRATIVE: CASE EVENT DATE: 20231116
